FAERS Safety Report 9209015 (Version 1)
Quarter: 2013Q1

REPORT INFORMATION
  Report Type: Spontaneous
  Country: US (occurrence: None)
  Receive Date: 20120820
  Receipt Date: 20120820
  Transmission Date: 20140127
  Serious: No
  Sender: FDA-Public Use
  Company Number: 1000037164

PATIENT
  Age: 60 Year
  Sex: Female

DRUGS (8)
  1. VIIBRYD (VILAZODONE) [Suspect]
     Indication: MAJOR DEPRESSION
     Route: 048
     Dates: start: 201206, end: 2012
  2. CYMBALTA (DULOXETINE HYDROCHLORIDE) (DULOXETINE HYDROCHLORIDE) [Concomitant]
     Dosage: 1 IN 1 D
  3. CYMBALTA (DULOXETINE HYDROCHLORIDE) (DULOXETINE HYDROCHLORIDE) [Concomitant]
     Dosage: 1 IN 1 D
  4. XANAX (ALPRAZOLAM) (ALPRAZOLAM) [Concomitant]
     Dosage: (PRN)
  5. KEPPRA (LEVETIRACETAM) (LEVETIRACETAM) [Concomitant]
     Dosage: BID (1000 MG, 2 IN 1 D)
  6. SIMVASTATIN (SIMVASTATIN) (SIMVASTATIN) [Concomitant]
  7. HYZAAR (HYZAAR) (HYZAAR) [Concomitant]
  8. VOLTAREN (DICLOFENAC) (DICLOFENAC) [Concomitant]

REACTIONS (2)
  - Anxiety [None]
  - Panic reaction [None]
